FAERS Safety Report 7061206-9 (Version None)
Quarter: 2010Q4

REPORT INFORMATION
  Report Type: 
  Country: None (occurrence: None)
  Receive Date: 20101026
  Receipt Date: 20101014
  Transmission Date: 20110411
  Serious: Yes (Hospitalization, Other)
  Sender: FDA-Public Use
  Company Number: GB-BAYER-201042839GPV

PATIENT
  Age: 76 Year
  Sex: Female

DRUGS (5)
  1. ACARBOSE [Suspect]
     Indication: DIABETES MELLITUS
     Dosage: TOTAL DAILY DOSE: 150 MG
     Route: 048
     Dates: start: 20100926, end: 20101004
  2. ROSUVASTATIN [Suspect]
     Indication: HYPERCHOLESTEROLAEMIA
     Route: 048
     Dates: end: 20101004
  3. TRIMETHOPRIM [Suspect]
     Indication: URINARY TRACT INFECTION
     Dosage: TOTAL DAILY DOSE: 600 MG
     Route: 048
     Dates: start: 20101001, end: 20101003
  4. METFORMIN [Concomitant]
     Indication: PRODUCT USED FOR UNKNOWN INDICATION
  5. NITROFURANTOIN [Concomitant]
     Indication: PRODUCT USED FOR UNKNOWN INDICATION

REACTIONS (3)
  - ABDOMINAL PAIN [None]
  - LIVER DISORDER [None]
  - LIVER FUNCTION TEST ABNORMAL [None]
